FAERS Safety Report 11220741 (Version 1)
Quarter: 2015Q2

REPORT INFORMATION
  Report Type: Spontaneous
  Country: US (occurrence: None)
  Receive Date: 20150625
  Receipt Date: 20150625
  Transmission Date: 20150821
  Serious: Yes (Life-Threatening, Hospitalization)
  Sender: FDA-Public Use
  Company Number: None

PATIENT
  Age: 58 Year
  Sex: Male
  Weight: 36.7 kg

DRUGS (1)
  1. ASPIRIN. [Suspect]
     Active Substance: ASPIRIN
     Indication: ATRIAL FIBRILLATION
     Route: 048
     Dates: start: 20150228, end: 20150421

REACTIONS (5)
  - Haemoglobin decreased [None]
  - Gastrointestinal haemorrhage [None]
  - Dyspnoea exertional [None]
  - Fatigue [None]
  - Gastric haemorrhage [None]

NARRATIVE: CASE EVENT DATE: 20150420
